FAERS Safety Report 4446805-2 (Version None)
Quarter: 2004Q3

REPORT INFORMATION
  Report Type: 
  Country: None (occurrence: None)
  Receive Date: 20040802
  Receipt Date: 20040418
  Transmission Date: 20050211
  Serious: No
  Sender: FDA-Public Use
  Company Number: 2004-117100-NL

PATIENT
  Sex: Female

DRUGS (6)
  1. NUVARING [Suspect]
     Dosage: DF DAILY
  2. MULTIVITAMIN [Concomitant]
  3. GNC WOMENS ULTRA MEGA [Concomitant]
  4. VITAMIN E [Concomitant]
  5. MONISTAT [Concomitant]
  6. REPLENS [Concomitant]

REACTIONS (4)
  - DEVICE FAILURE [None]
  - FUNGAL INFECTION [None]
  - MEDICAL DEVICE DISCOMFORT [None]
  - VULVOVAGINAL DRYNESS [None]
